FAERS Safety Report 7719195-7 (Version None)
Quarter: 2011Q3

REPORT INFORMATION
  Report Type: 
  Country: None (occurrence: None)
  Receive Date: 20110830
  Receipt Date: 20110818
  Transmission Date: 20111222
  Serious: Yes (Other)
  Sender: FDA-Public Use
  Company Number: US-SANOFI-AVENTIS-2011SA054226

PATIENT
  Age: 28 Year
  Sex: Female

DRUGS (2)
  1. LANTUS [Suspect]
     Dosage: DOSE:9 UNIT(S)
     Route: 058
     Dates: start: 20070101
  2. SOLOSTAR [Suspect]
     Dates: start: 20070101

REACTIONS (4)
  - DIABETIC KETOACIDOSIS [None]
  - HYPERGLYCAEMIA [None]
  - BLOOD GLUCOSE INCREASED [None]
  - PRODUCT QUALITY ISSUE [None]
